FAERS Safety Report 7524915-0 (Version None)
Quarter: 2011Q2

REPORT INFORMATION
  Report Type: 
  Country: None (occurrence: None)
  Receive Date: 20110606
  Receipt Date: 20110131
  Transmission Date: 20111010
  Serious: Yes (Other)
  Sender: FDA-Public Use
  Company Number: US-BAYER-201034570NA

PATIENT
  Age: 21 Year
  Sex: Female
  Weight: 54.422 kg

DRUGS (8)
  1. DROSPIRENONE AND ETHINYL ESTRADIOL [Suspect]
     Dosage: UNK
     Dates: start: 20090414, end: 20090831
  2. MOTRIN [Concomitant]
     Indication: PAIN
     Dosage: 800 MG, PRN
  3. DROSPIRENONE AND ETHINYL ESTRADIOL [Suspect]
     Dosage: UNK UNK, QD
     Route: 048
     Dates: start: 20030301
  4. MOTRIN [Concomitant]
     Indication: PREMENSTRUAL SYNDROME
  5. PROPOXYPHENE NAPSYLATE W/PARACETAMOL [Concomitant]
  6. TRAMADOL HCL [Concomitant]
  7. YAZ [Suspect]
     Dosage: UNK UNK, QD
     Route: 048
     Dates: start: 20060101, end: 20090101
  8. MICRONOR [Concomitant]
     Dosage: UNK
     Dates: start: 20080901

REACTIONS (2)
  - GALLBLADDER NON-FUNCTIONING [None]
  - CHOLECYSTITIS CHRONIC [None]
